FAERS Safety Report 5608260-6 (Version None)
Quarter: 2008Q1

REPORT INFORMATION
  Report Type: 
  Country: None (occurrence: None)
  Receive Date: 20080125
  Receipt Date: 20080110
  Transmission Date: 20080703
  Serious: Yes (Hospitalization)
  Sender: FDA-Public Use
  Company Number: 2008BI000834

PATIENT
  Age: 46 Year
  Sex: Female
  Weight: 112.4921 kg

DRUGS (1)
  1. AVONEX [Suspect]
     Indication: MULTIPLE SCLEROSIS
     Dosage: 30 UG; QW; IM
     Route: 030
     Dates: start: 20030131

REACTIONS (7)
  - ANAEMIA [None]
  - ARTHRITIS [None]
  - BLOOD PRESSURE INCREASED [None]
  - CYSTITIS [None]
  - FALL [None]
  - INTERVERTEBRAL DISC PROTRUSION [None]
  - WRIST FRACTURE [None]
